FAERS Safety Report 5843005-6 (Version None)
Quarter: 2008Q3

REPORT INFORMATION
  Report Type: 
  Country: None (occurrence: None)
  Receive Date: 20080811
  Receipt Date: 20080804
  Transmission Date: 20090109
  Serious: Yes (Death, Hospitalization, Other)
  Sender: FDA-Public Use
  Company Number: 163-20785-08070117

PATIENT
  Age: 60 Year
  Sex: Male

DRUGS (5)
  1. THALOMID [Suspect]
     Indication: MULTIPLE MYELOMA
     Dosage: 100 MG, 1 IN 1 D, ORAL
     Route: 048
     Dates: start: 20080514
  2. MELPHALAN (MELPHALAN) [Concomitant]
  3. DEXAMETHASONE TAB [Concomitant]
  4. PLAVIX [Concomitant]
  5. ASPIRIN [Concomitant]

REACTIONS (5)
  - ANAEMIA [None]
  - AORTIC ANEURYSM RUPTURE [None]
  - COAGULOPATHY [None]
  - DIALYSIS [None]
  - RENAL FAILURE ACUTE [None]
